FAERS Safety Report 23250526 (Version 3)
Quarter: 2024Q1

REPORT INFORMATION
  Report Type: Report from Study
  Country: JP (occurrence: JP)
  Receive Date: 20231201
  Receipt Date: 20240301
  Transmission Date: 20240410
  Serious: Yes (Death, Life-Threatening)
  Sender: FDA-Public Use
  Company Number: JP-RECORDATI RARE DISEASE INC.-2023008355

PATIENT

DRUGS (18)
  1. NEOPROFEN [Suspect]
     Active Substance: IBUPROFEN LYSINE
     Indication: Patent ductus arteriosus
     Dosage: 2.5 MILLIGRAM
     Route: 042
     Dates: start: 20210809, end: 20210809
  2. NEOPROFEN [Suspect]
     Active Substance: IBUPROFEN LYSINE
     Dosage: 2.5 MG
     Route: 042
     Dates: start: 20210810, end: 20210810
  3. NEOPROFEN [Suspect]
     Active Substance: IBUPROFEN LYSINE
     Dosage: 2.5 MILLIGRAM
     Route: 042
     Dates: start: 20210811, end: 20210811
  4. REHABIX K2 [Concomitant]
     Indication: Fluid replacement
     Dosage: UNK
     Route: 042
     Dates: start: 20210808, end: 20211111
  5. PLEAMIN P [Concomitant]
     Indication: Fluid replacement
     Dosage: UNK
     Route: 042
     Dates: start: 20210808, end: 20211112
  6. SODIUM CHLORIDE [Concomitant]
     Active Substance: SODIUM CHLORIDE
     Indication: Fluid replacement
     Dosage: UNK
     Route: 042
     Dates: start: 20210804, end: 20211115
  7. GLUCOSE OTSUKA [Concomitant]
     Indication: Fluid replacement
     Dosage: UNK
     Route: 042
     Dates: start: 20210804, end: 20210911
  8. HEPARIN [Concomitant]
     Active Substance: HEPARIN SODIUM
     Indication: Anticoagulant therapy
     Dosage: UNK
     Route: 042
     Dates: start: 20210804, end: 20211115
  9. FENTANYL [Concomitant]
     Active Substance: FENTANYL\FENTANYL CITRATE
     Indication: Sedation
     Dosage: UNK
     Route: 042
     Dates: start: 20210804, end: 20210815
  10. DOPAMINE HYDROCHLORIDE [Concomitant]
     Active Substance: DOPAMINE HYDROCHLORIDE
     Indication: Cardiovascular disorder
     Dosage: UNK
     Route: 042
     Dates: start: 20210804, end: 20210810
  11. DOBUTAMINE HYDROCHLORIDE [Concomitant]
     Active Substance: DOBUTAMINE HYDROCHLORIDE
     Indication: Cardiovascular disorder
     Dosage: UNK
     Route: 042
     Dates: start: 20210804, end: 20210810
  12. GLUCOSE OTSUKA [Concomitant]
     Indication: Fluid replacement
     Dosage: UNK
     Route: 042
     Dates: start: 20210804, end: 20210815
  13. ISOTONIC SODIUM CHLORIDE SOLUTION [Concomitant]
     Active Substance: SODIUM CHLORIDE
     Indication: Fluid replacement
     Dosage: UNK
     Route: 042
     Dates: start: 20210804, end: 20210815
  14. GENTAMICIN SULFATE [Concomitant]
     Active Substance: GENTAMICIN SULFATE
     Indication: Neonatal infection
     Dosage: UNK
     Route: 042
     Dates: start: 20210804, end: 20210811
  15. AMPICILLIN SODIUM [Concomitant]
     Active Substance: AMPICILLIN SODIUM
     Indication: Neonatal infection
     Dosage: UNK
     Route: 042
     Dates: start: 20210804, end: 20210810
  16. MULTAMIN [VITAMINS NOS] [Concomitant]
     Indication: Fluid replacement
     Dosage: UNK
     Route: 042
     Dates: start: 20210806, end: 20211115
  17. FUROSEMIDE [Concomitant]
     Active Substance: FUROSEMIDE
     Indication: Cardiovascular disorder
     Dosage: UNK
     Route: 042
     Dates: start: 20210809, end: 20210810
  18. GLYCERIN [Concomitant]
     Active Substance: GLYCERIN
     Indication: Neonatal infection
     Dosage: UNK
     Dates: start: 20210805, end: 20211115

REACTIONS (2)
  - Ascites [Fatal]
  - Gastrointestinal perforation [Not Recovered/Not Resolved]

NARRATIVE: CASE EVENT DATE: 20210811
